FAERS Safety Report 12723261 (Version 2)
Quarter: 2016Q3

REPORT INFORMATION
  Report Type: Spontaneous
  Country: CN (occurrence: CN)
  Receive Date: 20160908
  Receipt Date: 20160912
  Transmission Date: 20161109
  Serious: Yes (Other)
  Sender: FDA-Public Use
  Company Number: CN-ROCHE-1826941

PATIENT

DRUGS (2)
  1. VORICONAZOLE. [Concomitant]
     Active Substance: VORICONAZOLE
     Indication: PRODUCT USED FOR UNKNOWN INDICATION
     Route: 065
  2. CYMEVENE [Suspect]
     Active Substance: GANCICLOVIR
     Indication: VIRAL INFECTION
     Dosage: ONCE IN THE MORNING AND ONCE IN THE EVENING
     Route: 065
     Dates: start: 20160905

REACTIONS (2)
  - Oliguria [Recovered/Resolved]
  - Anuria [Recovered/Resolved]

NARRATIVE: CASE EVENT DATE: 20160906
